FAERS Safety Report 21091808 (Version 2)
Quarter: 2022Q3

REPORT INFORMATION
  Report Type: Other
  Country: US (occurrence: None)
  Receive Date: 20220717
  Receipt Date: 20220913
  Transmission Date: 20221026
  Serious: No
  Sender: FDA-Public Use
  Company Number: US-ROCHE-3138887

PATIENT
  Sex: Female

DRUGS (1)
  1. OCREVUS [Suspect]
     Active Substance: OCRELIZUMAB
     Indication: Primary progressive multiple sclerosis
     Dosage: YES?INFUSE 300 MG ON DAY 1 AND DAY 15, THEN 600 MG FOR EVERY 6 MONTHS?ANTICIPATED DATE OF TREATMENT:
     Route: 065
     Dates: start: 20201111

REACTIONS (1)
  - COVID-19 [Not Recovered/Not Resolved]
